FAERS Safety Report 4871574-1 (Version None)
Quarter: 2006Q1

REPORT INFORMATION
  Report Type: 
  Country: None (occurrence: None)
  Receive Date: 20060104
  Receipt Date: 20051227
  Transmission Date: 20060701
  Serious: Yes (Other)
  Sender: FDA-Public Use
  Company Number: US-JNJFOC-20051206164

PATIENT

DRUGS (1)
  1. INFLIXIMAB [Suspect]
     Indication: DRUG USE FOR UNKNOWN INDICATION
     Route: 042

REACTIONS (2)
  - ACUTE CORONARY SYNDROME [None]
  - MYOCARDIAL INFARCTION [None]
